FAERS Safety Report 9080240 (Version 2)
Quarter: 2013Q1

REPORT INFORMATION
  Report Type: Spontaneous
  Country: DK (occurrence: DK)
  Receive Date: 20130218
  Receipt Date: 20130226
  Transmission Date: 20140127
  Serious: Yes (Other)
  Sender: FDA-Public Use
  Company Number: PHHY2013DK013967

PATIENT
  Sex: Female
  Weight: 80 kg

DRUGS (18)
  1. VINORELBINE [Suspect]
     Indication: DISEASE PROGRESSION
     Dates: start: 20121001
  2. VINORELBINE [Suspect]
     Indication: BREAST CANCER
     Dosage: 150 MG
     Route: 048
     Dates: start: 201211, end: 201301
  3. DOCETAXEL [Suspect]
     Indication: BREAST CANCER
     Dosage: 150 MG
     Route: 042
     Dates: start: 201201, end: 201207
  4. CISPLATIN [Suspect]
     Indication: CHEMOTHERAPY
     Dates: start: 201210, end: 201211
  5. CISPLATIN [Suspect]
     Dates: start: 201211, end: 201301
  6. GEMCITABINE [Suspect]
     Indication: CHEMOTHERAPY
     Dates: start: 201210, end: 201211
  7. EPIRUBICIN [Suspect]
     Indication: BREAST CANCER
     Dosage: 180 MG
     Route: 042
     Dates: start: 20111011, end: 201201
  8. CYCLOPHOSPHAMIDE [Suspect]
     Indication: BREAST CANCER
     Dosage: 1200 MG
     Route: 042
     Dates: start: 20111011, end: 201201
  9. XELODA [Suspect]
     Indication: DISEASE PROGRESSION
     Dosage: 4000 MG
     Route: 048
     Dates: start: 201207, end: 201209
  10. XELODA [Suspect]
     Indication: BREAST CANCER
  11. TRASTUZUMAB [Suspect]
     Indication: DISEASE PROGRESSION
     Dosage: 480 MG
     Route: 042
     Dates: start: 20111213, end: 201207
  12. TRASTUZUMAB [Suspect]
     Dates: start: 20121001
  13. TRASTUZUMAB [Suspect]
     Dosage: 486 MG
     Route: 042
     Dates: start: 201211, end: 201301
  14. IBANDRONAT [Suspect]
     Route: 042
  15. LAPATINIB [Suspect]
     Indication: DISEASE PROGRESSION
     Dosage: 250 MG
     Route: 048
     Dates: start: 201207, end: 201209
  16. MITOMYCIN [Suspect]
     Indication: CHEMOTHERAPY
     Dates: start: 201210, end: 201211
  17. AMLODIPIN [Concomitant]
     Indication: HYPERTENSION
     Route: 048
  18. LISINOPRIL [Concomitant]
     Indication: HYPERTENSION
     Route: 048

REACTIONS (1)
  - Liver disorder [Not Recovered/Not Resolved]
